FAERS Safety Report 4621168-8 (Version None)
Quarter: 2005Q1

REPORT INFORMATION
  Report Type: 
  Country: None (occurrence: None)
  Receive Date: 20050328
  Receipt Date: 20050323
  Transmission Date: 20050727
  Serious: Yes (Other)
  Sender: FDA-Public Use
  Company Number: 200510722GDS

PATIENT
  Sex: Female

DRUGS (1)
  1. AVELOX [Suspect]
     Indication: LUNG INFECTION
     Dosage: 400 MG, QD, ORAL
     Route: 048
     Dates: start: 20050311, end: 20050315

REACTIONS (3)
  - GINGIVAL BLEEDING [None]
  - GUM NEOPLASM MALIGNANT STAGE UNSPECIFIED [None]
  - MOUTH HAEMORRHAGE [None]
